FAERS Safety Report 6071391-3 (Version None)
Quarter: 2009Q1

REPORT INFORMATION
  Report Type: 
  Country: None (occurrence: None)
  Receive Date: 20090209
  Receipt Date: 20090130
  Transmission Date: 20090719
  Serious: Yes (Other)
  Sender: FDA-Public Use
  Company Number: GB-GILEAD-2008-0019527

PATIENT
  Sex: Male
  Weight: 98.3 kg

DRUGS (3)
  1. ATRIPLA [Suspect]
     Route: 048
     Dates: start: 20080623
  2. TRUVADA [Concomitant]
     Dates: start: 20070201, end: 20080601
  3. EFAVIRENZ [Concomitant]
     Dates: start: 20070201, end: 20080601

REACTIONS (1)
  - VIRAL LOAD INCREASED [None]
